FAERS Safety Report 7893056-5 (Version None)
Quarter: 2011Q4

REPORT INFORMATION
  Report Type: 
  Country: None (occurrence: None)
  Receive Date: 20111104
  Receipt Date: 20110922
  Transmission Date: 20120403
  Serious: No
  Sender: FDA-Public Use
  Company Number: US-GLAXOSMITHKLINE-A0945635A

PATIENT
  Age: 59 Year
  Sex: Female

DRUGS (4)
  1. INDERAL [Concomitant]
  2. HORIZANT [Suspect]
     Indication: RESTLESS LEGS SYNDROME
     Dosage: 1 PER DAY
     Route: 048
     Dates: start: 20110921
  3. ROPINIROLE [Concomitant]
  4. PROZAC [Concomitant]

REACTIONS (2)
  - DIZZINESS [None]
  - FEELING ABNORMAL [None]
